FAERS Safety Report 9696172 (Version 2)
Quarter: 2013Q4

REPORT INFORMATION
  Report Type: Report from Study
  Country: FR (occurrence: FR)
  Receive Date: 20131119
  Receipt Date: 20131127
  Transmission Date: 20140711
  Serious: Yes (Other)
  Sender: FDA-Public Use
  Company Number: FR-ASTELLAS-2013EU009964

PATIENT
  Age: 45 Year
  Sex: Male
  Weight: 74 kg

DRUGS (10)
  1. ENZALUTAMIDE [Suspect]
     Indication: PROSTATE CANCER
     Dosage: 160 MG, UID/QD
     Route: 048
     Dates: start: 20130618
  2. ENZALUTAMIDE [Suspect]
     Dosage: 80 MG, UID/QD
     Route: 048
     Dates: start: 20130813
  3. ENZALUTAMIDE [Suspect]
     Dosage: 120 MG, UID/QD
     Route: 048
     Dates: start: 20131105
  4. KARDEGIC [Concomitant]
     Indication: HYPERTENSION
     Dosage: UNK
     Route: 048
  5. KARDEGIC [Concomitant]
     Indication: CORONARY ARTERY INSUFFICIENCY
  6. PREVISCAN                          /00261401/ [Concomitant]
     Indication: HYPERTENSION
     Dosage: UNK
     Route: 048
  7. PREVISCAN                          /00261401/ [Concomitant]
     Indication: CORONARY ARTERY INSUFFICIENCY
  8. DUROGESIC [Concomitant]
     Indication: PAIN
     Dosage: 125 UG, UNKNOWN/D
     Route: 048
  9. OXYNORM [Concomitant]
     Indication: PAIN
     Dosage: 12 MG, PRN
     Route: 065
  10. LASILIX                            /00032601/ [Concomitant]
     Indication: HYPERTENSION
     Dosage: 10 MG, UNKNOWN/D
     Route: 065

REACTIONS (2)
  - Toxicity to various agents [Recovered/Resolved with Sequelae]
  - Prostatic specific antigen increased [Unknown]
